FAERS Safety Report 8955620 (Version 2)
Quarter: 2013Q3

REPORT INFORMATION
  Report Type: Spontaneous
  Country: GB (occurrence: GB)
  Receive Date: 20121207
  Receipt Date: 20130930
  Transmission Date: 20140515
  Serious: Yes (Death, Hospitalization)
  Sender: FDA-Public Use
  Company Number: GB-ROCHE-1160629

PATIENT
  Age: 59 Year
  Sex: Male

DRUGS (9)
  1. CAPECITABINE [Suspect]
     Indication: GASTRIC CANCER
     Route: 065
  2. CLOZARIL [Suspect]
     Indication: SCHIZOPHRENIA
     Route: 048
     Dates: start: 20010701, end: 20120718
  3. CLOZARIL [Suspect]
     Route: 048
     Dates: start: 20120721
  4. CLOZARIL [Suspect]
     Route: 048
  5. EPIRUBICIN [Suspect]
     Indication: GASTRIC CANCER
     Route: 065
  6. OXALIPLATIN [Suspect]
     Indication: GASTRIC CANCER
     Route: 065
  7. HALOPERIDOL [Concomitant]
     Indication: SCHIZOPHRENIA
     Route: 048
  8. PROCYCLIDINE [Concomitant]
     Indication: EXTRAPYRAMIDAL DISORDER
     Route: 048
  9. THIAMIN [Concomitant]
     Indication: VOMITING
     Route: 048

REACTIONS (10)
  - Adenocarcinoma gastric [Fatal]
  - Obstruction gastric [Fatal]
  - Differential white blood cell count abnormal [Unknown]
  - Diarrhoea [Recovered/Resolved with Sequelae]
  - Neutrophil count decreased [Unknown]
  - Platelet count decreased [Unknown]
  - Malaise [Unknown]
  - Weight decreased [Recovered/Resolved with Sequelae]
  - White blood cell count increased [Unknown]
  - Vomiting [Recovered/Resolved with Sequelae]
